FAERS Safety Report 22314854 (Version 1)
Quarter: 2023Q2

REPORT INFORMATION
  Report Type: Spontaneous
  Country: GR (occurrence: GR)
  Receive Date: 20230512
  Receipt Date: 20230512
  Transmission Date: 20230722
  Serious: Yes (Other)
  Sender: FDA-Public Use
  Company Number: GR-BRISTOL-MYERS SQUIBB COMPANY-2022-051329

PATIENT
  Age: 72 Year
  Sex: Female

DRUGS (4)
  1. ELIQUIS [Suspect]
     Active Substance: APIXABAN
     Indication: Cerebrovascular accident prophylaxis
     Dates: start: 2021
  2. LEVOTHYROXINE SODIUM [Concomitant]
     Active Substance: LEVOTHYROXINE SODIUM
     Indication: Hypothyroidism
  3. MOSTRELAN [Concomitant]
     Indication: Reflux gastritis
  4. MEDROL [Concomitant]
     Active Substance: METHYLPREDNISOLONE
     Indication: Hypersensitivity

REACTIONS (5)
  - Tinea versicolour [Unknown]
  - Musculoskeletal disorder [Unknown]
  - Urinary tract infection [Unknown]
  - Inappropriate schedule of product administration [Unknown]
  - Cardiomyopathy [Unknown]
